FAERS Safety Report 20432904 (Version 2)
Quarter: 2022Q1

REPORT INFORMATION
  Report Type: Spontaneous
  Country: US (occurrence: US)
  Receive Date: 20220205
  Receipt Date: 20220309
  Transmission Date: 20220424
  Serious: No
  Sender: FDA-Public Use
  Company Number: US-SA-SAC20220128001552

PATIENT
  Age: 35 Year
  Sex: Female

DRUGS (2)
  1. DUPIXENT [Suspect]
     Active Substance: DUPILUMAB
     Indication: Sinusitis
     Dosage: UNK
     Route: 058
  2. DUPIXENT [Suspect]
     Active Substance: DUPILUMAB
     Dosage: 300 MG, QOW
     Route: 058
     Dates: start: 20220223

REACTIONS (2)
  - Product dose omission issue [Unknown]
  - Product use in unapproved indication [Unknown]
